FAERS Safety Report 4464919-8 (Version None)
Quarter: 2004Q4

REPORT INFORMATION
  Report Type: 
  Country: None (occurrence: None)
  Receive Date: 20041004
  Receipt Date: 20040223
  Transmission Date: 20050328
  Serious: No
  Sender: FDA-Public Use
  Company Number: 361783

PATIENT
  Age: 27 Year
  Sex: Female

DRUGS (4)
  1. COREG [Suspect]
     Indication: PERIPARTUM CARDIOMYOPATHY
     Dosage: 50MG TWICE PER DAY
     Route: 048
     Dates: start: 20030918
  2. LISINOPRIL [Concomitant]
  3. LASIX [Concomitant]
  4. DIGITEK [Concomitant]

REACTIONS (2)
  - NIGHTMARE [None]
  - PHOTOPHOBIA [None]
